FAERS Safety Report 8981072 (Version 1)
Quarter: 2012Q4

REPORT INFORMATION
  Report Type: 
  Country: AR (occurrence: AR)
  Receive Date: 20121221
  Receipt Date: 20121221
  Transmission Date: 20130627
  Serious: Yes (Other)
  Sender: FDA-Public Use
  Company Number: AR-PFIZER INC-2012321471

PATIENT
  Age: 9 Year
  Sex: Male

DRUGS (1)
  1. GENOTROPIN [Suspect]
     Indication: PRADER-WILLI SYNDROME
     Dosage: 1 to 1.4 mg 6x/week
     Dates: start: 20110330

REACTIONS (2)
  - Apnoea [Unknown]
  - Tonsillar disorder [Recovered/Resolved]
